FAERS Safety Report 21403481 (Version 1)
Quarter: 2022Q4

REPORT INFORMATION
  Report Type: Spontaneous
  Country: ES (occurrence: ES)
  Receive Date: 20221003
  Receipt Date: 20221003
  Transmission Date: 20230113
  Serious: Yes (Hospitalization)
  Sender: FDA-Public Use
  Company Number: None

PATIENT
  Age: 67 Year
  Sex: Male

DRUGS (8)
  1. BEVACIZUMAB [Suspect]
     Active Substance: BEVACIZUMAB
     Indication: Adenocarcinoma of colon
     Dosage: 385 MG, CYCLIC, EVERY 2 WEEKS
     Dates: start: 20220803
  2. FLUOROURACIL [Suspect]
     Active Substance: FLUOROURACIL
     Indication: Adenocarcinoma of colon
     Dosage: 4188.4 MG, CYCLIC, EVERY 2 WEEKS
     Dates: start: 20220803
  3. CALCIFEDIOL [Concomitant]
     Active Substance: CALCIFEDIOL
     Indication: Vitamin D
     Dosage: 0.266 MG, CYCLIC, EVERY 30 DAYS
     Route: 048
     Dates: start: 20220127
  4. SUERORAL CASEN [Concomitant]
     Indication: Gastroenteritis
     Dosage: 1 DF, 3X/DAY, BEFORE MEALS
     Route: 048
     Dates: start: 20211015
  5. PRIMPERAN [Concomitant]
     Active Substance: METOCLOPRAMIDE HYDROCHLORIDE
     Indication: Adenocarcinoma of colon
     Dosage: 10 MG, 3X/DAY, BEFORE MEALS
     Route: 048
     Dates: start: 20200406
  6. BISOPROLOL [Concomitant]
     Active Substance: BISOPROLOL
     Indication: Hypertension
     Dosage: 5 MG, 1X/DAY, BEFORE BREAKFAST
     Route: 048
     Dates: start: 20181208
  7. OXALIPLATIN [Concomitant]
     Active Substance: OXALIPLATIN
     Indication: Adenocarcinoma
     Dosage: 12716 MG, CYCLIC, EVERY 14 DAYS
     Dates: start: 20220803
  8. ZOFRAN [Concomitant]
     Active Substance: ONDANSETRON HYDROCHLORIDE
     Indication: Neoplasm malignant
     Dosage: 4 MG, EVERY 4 HRS
     Route: 048
     Dates: start: 20220816

REACTIONS (1)
  - Acute myocardial infarction [Recovered/Resolved]

NARRATIVE: CASE EVENT DATE: 20220830
